FAERS Safety Report 9993367 (Version 3)
Quarter: 2014Q1

REPORT INFORMATION
  Report Type: Report from Study
  Country: CA (occurrence: CA)
  Receive Date: 20140310
  Receipt Date: 20140312
  Transmission Date: 20141002
  Serious: Yes (Hospitalization, Other)
  Sender: FDA-Public Use
  Company Number: PHHY2011CA106726

PATIENT
  Age: 66 Year
  Sex: Female
  Weight: 63 kg

DRUGS (1)
  1. EXTAVIA [Suspect]
     Indication: RELAPSING-REMITTING MULTIPLE SCLEROSIS
     Dosage: 8 MIU, QOD
     Route: 058
     Dates: start: 20111201, end: 20140214

REACTIONS (9)
  - Skin injury [Unknown]
  - Cellulitis [Unknown]
  - Erythema [Unknown]
  - Local swelling [Unknown]
  - Skin exfoliation [Unknown]
  - Scab [Unknown]
  - Mobility decreased [Unknown]
  - Injection site rash [Unknown]
  - Injection site erythema [Unknown]
